FAERS Safety Report 6072928-0 (Version None)
Quarter: 2009Q1

REPORT INFORMATION
  Report Type: 
  Country: None (occurrence: None)
  Receive Date: 20090206
  Receipt Date: 20090107
  Transmission Date: 20090719
  Serious: Yes (Hospitalization)
  Sender: FDA-Public Use
  Company Number: 230208K09USA

PATIENT
  Age: 57 Year
  Sex: Female

DRUGS (1)
  1. REBIF [Suspect]
     Indication: MULTIPLE SCLEROSIS
     Dosage: 44 MCG, 3 IN 1 WEEKS, SUBCUTANEOUS
     Route: 058
     Dates: start: 20080512, end: 20081201

REACTIONS (3)
  - ABDOMINAL PAIN UPPER [None]
  - GASTROINTESTINAL NEOPLASM [None]
  - NEOPLASM OF APPENDIX [None]
